FAERS Safety Report 5528151-9 (Version None)
Quarter: 2007Q4

REPORT INFORMATION
  Report Type: 
  Country: None (occurrence: None)
  Receive Date: 20071128
  Receipt Date: 20071120
  Transmission Date: 20080405
  Serious: Yes (Other)
  Sender: FDA-Public Use
  Company Number: AR-PFIZER INC-2007097140

PATIENT
  Sex: Male

DRUGS (1)
  1. ZELDOX (CAPSULES) [Suspect]
     Dosage: DAILY DOSE:60MG
     Route: 048

REACTIONS (3)
  - ANORECTAL DISORDER [None]
  - DIVERTICULITIS [None]
  - PSYCHIATRIC DECOMPENSATION [None]
